FAERS Safety Report 8270272-4 (Version None)
Quarter: 2012Q2

REPORT INFORMATION
  Report Type: 
  Country: None (occurrence: None)
  Receive Date: 20120410
  Receipt Date: 20120409
  Transmission Date: 20120825
  Serious: Yes (Hospitalization)
  Sender: FDA-Public Use
  Company Number: US-ROXANE LABORATORIES, INC.-2011-RO-01150RO

PATIENT
  Sex: Female
  Weight: 70 kg

DRUGS (11)
  1. ENZASTAURIN [Suspect]
     Indication: DIFFUSE LARGE B-CELL LYMPHOMA
     Route: 048
     Dates: start: 20080820, end: 20110712
  2. DOXORUBICIN HCL [Suspect]
     Indication: DIFFUSE LARGE B-CELL LYMPHOMA
     Route: 042
     Dates: start: 20080820, end: 20081202
  3. FOLIC ACID [Concomitant]
     Indication: ARTHRITIS
     Dates: start: 20050101
  4. PREDNISONE TAB [Suspect]
     Indication: DIFFUSE LARGE B-CELL LYMPHOMA
     Route: 048
     Dates: start: 20080820, end: 20081206
  5. RITUXIMAB [Suspect]
     Indication: DIFFUSE LARGE B-CELL LYMPHOMA
     Route: 042
     Dates: start: 20080820, end: 20081202
  6. METHOTREXATE [Concomitant]
     Indication: ARTHRITIS
     Dates: start: 20050101
  7. CYCLOPHOSPHAMIDE [Suspect]
     Indication: DIFFUSE LARGE B-CELL LYMPHOMA
     Route: 042
     Dates: start: 20080820, end: 20081202
  8. VINCRISTINE [Suspect]
     Indication: DIFFUSE LARGE B-CELL LYMPHOMA
     Route: 042
     Dates: start: 20080820, end: 20081202
  9. TRIAMTERENE [Concomitant]
     Indication: HYPERTENSION
     Dates: start: 20070101
  10. ASPIRIN [Concomitant]
     Indication: PROPHYLAXIS
     Dates: start: 20110118
  11. ALBUTEROL [Concomitant]
     Indication: CHRONIC OBSTRUCTIVE PULMONARY DISEASE
     Dates: start: 20080630

REACTIONS (4)
  - TIBIA FRACTURE [None]
  - CARDIOMEGALY [None]
  - FALL [None]
  - FIBULA FRACTURE [None]
